FAERS Safety Report 11948204 (Version 1)
Quarter: 2016Q1

REPORT INFORMATION
  Report Type: Spontaneous
  Country: US (occurrence: None)
  Receive Date: 20160121
  Receipt Date: 20160121
  Transmission Date: 20160526
  Serious: Yes (Other)
  Sender: FDA-Public Use
  Company Number: None

PATIENT
  Age: 72 Year
  Sex: Female
  Weight: 75.75 kg

DRUGS (1)
  1. ORENCIA [Suspect]
     Active Substance: ABATACEPT
     Indication: RHEUMATOID ARTHRITIS
     Dosage: 125MG/ML?SHIPPED 12/24/2013 - CURRENT
     Route: 058
     Dates: start: 20131224

REACTIONS (3)
  - Nausea [None]
  - Erythema [None]
  - Upper respiratory tract infection [None]

NARRATIVE: CASE EVENT DATE: 20160120
